FAERS Safety Report 5090715-7 (Version None)
Quarter: 2006Q3

REPORT INFORMATION
  Report Type: 
  Country: None (occurrence: None)
  Receive Date: 20060828
  Receipt Date: 20060816
  Transmission Date: 20061208
  Serious: Yes (Other)
  Sender: FDA-Public Use
  Company Number: PHNU2006DE02850

PATIENT
  Age: 81 Year
  Sex: Female

DRUGS (1)
  1. EMSELEX EXTENDED RELEASE [Suspect]
     Indication: HYPERTONIC BLADDER
     Dosage: 7.5 MG DAILY
     Route: 048
     Dates: start: 20060619, end: 20060627

REACTIONS (2)
  - CONSTIPATION [None]
  - ILEUS PARALYTIC [None]
